FAERS Safety Report 9857062 (Version 2)
Quarter: 2014Q1

REPORT INFORMATION
  Report Type: Spontaneous
  Country: JP (occurrence: None)
  Receive Date: 20140128
  Receipt Date: 20140304
  Transmission Date: 20141002
  Serious: Yes (Life-Threatening)
  Sender: FDA-Public Use
  Company Number: SP07452

PATIENT
  Age: 65 Year
  Sex: Male

DRUGS (3)
  1. MOVIPREP [Suspect]
     Indication: BOWEL PREPARATION
     Route: 048
     Dates: start: 20140115, end: 20140115
  2. PURSENID (TABLET) [Concomitant]
  3. LAXOBERON [Concomitant]

REACTIONS (4)
  - Rash generalised [None]
  - Sneezing [None]
  - Pharyngeal disorder [None]
  - Rash [None]
